FAERS Safety Report 9720946 (Version 1)
Quarter: 2013Q4

REPORT INFORMATION
  Report Type: Spontaneous
  Country: US (occurrence: US)
  Receive Date: 20131129
  Receipt Date: 20131129
  Transmission Date: 20140711
  Serious: Yes (Death)
  Sender: FDA-Public Use
  Company Number: US-BRISTOL-MYERS SQUIBB COMPANY-19846765

PATIENT
  Age: 48 Year
  Sex: Male

DRUGS (4)
  1. PRAVASTATIN SODIUM [Suspect]
  2. CORTISONE ACETATE [Suspect]
  3. NEURONTIN [Suspect]
  4. LYRICA [Suspect]

REACTIONS (2)
  - Cerebrovascular accident [Fatal]
  - Drug ineffective [Unknown]
